FAERS Safety Report 13455999 (Version 1)
Quarter: 2017Q2

REPORT INFORMATION
  Report Type: Spontaneous
  Country: JP (occurrence: JP)
  Receive Date: 20170418
  Receipt Date: 20170418
  Transmission Date: 20170830
  Serious: Yes (Hospitalization)
  Sender: FDA-Public Use
  Company Number: JP-PFIZER INC-2017097693

PATIENT
  Age: 48 Year
  Sex: Male

DRUGS (3)
  1. DOCETAXEL 80MG/8ML HOSPIRA [Suspect]
     Active Substance: DOCETAXEL
     Dosage: 60 MG/M2, UNK
     Route: 041
  2. TS-1 [Concomitant]
     Active Substance: GIMERACIL\OTERACIL\TEGAFUR
     Dosage: UNK
     Dates: start: 201604
  3. DOCETAXEL 80MG/8ML HOSPIRA [Suspect]
     Active Substance: DOCETAXEL
     Indication: GASTRIC CANCER
     Dosage: 60 MG/M2, DAILY
     Route: 041
     Dates: start: 20160401, end: 20170220

REACTIONS (5)
  - Vomiting [Unknown]
  - Nystagmus [Unknown]
  - Neoplasm progression [Unknown]
  - Asthenia [Unknown]
  - Seizure [Unknown]

NARRATIVE: CASE EVENT DATE: 201702
